FAERS Safety Report 7226084-3 (Version None)
Quarter: 2011Q1

REPORT INFORMATION
  Report Type: 
  Country: None (occurrence: None)
  Receive Date: 20110113
  Receipt Date: 20110106
  Transmission Date: 20110831
  Serious: Yes (Death)
  Sender: FDA-Public Use
  Company Number: US-B.I. PHARMACEUTICALS,INC./RIDGEFIELD-2011-DE-00333GD

PATIENT
  Age: 70 Year
  Sex: Female

DRUGS (18)
  1. ACETAMINOPHEN [Suspect]
     Route: 048
  2. PREGABALIN [Suspect]
     Route: 048
  3. DULOXETIME HYDROCHLORIDE [Suspect]
     Route: 048
  4. FOLIC ACID [Suspect]
     Route: 048
  5. CALCIUM [Suspect]
     Route: 048
  6. HYDROMORPHONE HCL [Suspect]
     Route: 048
  7. LISINOPRIL [Suspect]
     Route: 048
  8. FLUOXETINE [Suspect]
     Route: 048
  9. LOVASTATIN [Suspect]
     Route: 048
  10. METHADONE HCL [Suspect]
     Route: 048
  11. CYCLOBENZAPRINE [Suspect]
     Route: 048
  12. CHLORDIAZEPOXIDE [Suspect]
     Route: 048
  13. TORSEMIDE [Suspect]
     Route: 048
  14. MULTI-VITAMINS [Suspect]
     Route: 048
  15. MELOXICAM [Suspect]
     Route: 048
  16. DESIPRAMINE HCL [Suspect]
     Route: 048
  17. CLONAZEPAM [Suspect]
     Route: 048
  18. ACETAMINOPHEN AND OXYCODONE HCL [Suspect]
     Route: 048

REACTIONS (1)
  - COMPLETED SUICIDE [None]
